FAERS Safety Report 19884355 (Version 1)
Quarter: 2021Q3

REPORT INFORMATION
  Report Type: Spontaneous
  Country: US (occurrence: US)
  Receive Date: 20210927
  Receipt Date: 20210927
  Transmission Date: 20211014
  Serious: Yes (Hospitalization, Other)
  Sender: FDA-Public Use
  Company Number: US-ALKEM LABORATORIES LIMITED-US-ALKEM-2021-05978

PATIENT
  Age: 60 Year
  Sex: Male

DRUGS (6)
  1. MORPHINE SULFATE. [Suspect]
     Active Substance: MORPHINE SULFATE
     Indication: NECK PAIN
  2. BACLOFEN. [Suspect]
     Active Substance: BACLOFEN
     Indication: CERVICAL SPINAL STENOSIS
     Dosage: 1.25 MILLIGRAM, QD
     Route: 037
  3. BACLOFEN. [Suspect]
     Active Substance: BACLOFEN
     Indication: NECK PAIN
  4. MORPHINE SULFATE. [Suspect]
     Active Substance: MORPHINE SULFATE
     Indication: CERVICAL SPINAL STENOSIS
     Dosage: 4.7 MILLIGRAM, QD
     Route: 037
  5. BUPIVACAINE. [Suspect]
     Active Substance: BUPIVACAINE
     Indication: CERVICAL SPINAL STENOSIS
     Dosage: 3.1 MILLIGRAM, QD
     Route: 037
  6. BUPIVACAINE. [Suspect]
     Active Substance: BUPIVACAINE
     Indication: NECK PAIN

REACTIONS (3)
  - Mental status changes [Recovering/Resolving]
  - Overdose [Unknown]
  - Respiratory depression [Recovering/Resolving]
